FAERS Safety Report 10635767 (Version 2)
Quarter: 2015Q2

REPORT INFORMATION
  Report Type: Spontaneous
  Country: US (occurrence: US)
  Receive Date: 20141205
  Receipt Date: 20150406
  Transmission Date: 20150821
  Serious: Yes (Other)
  Sender: FDA-Public Use
  Company Number: US-ELI_LILLY_AND_COMPANY-US201411011087

PATIENT
  Age: 29 Year
  Sex: Female

DRUGS (5)
  1. HUMULIN R [Concomitant]
     Active Substance: INSULIN HUMAN
     Dosage: 20 IU, EACH EVENING
     Route: 065
  2. ALDOMET [Concomitant]
     Active Substance: METHYLDOPA
     Indication: PRODUCT USED FOR UNKNOWN INDICATION
     Dosage: 250 MG, BID
     Route: 048
  3. PROZAC [Suspect]
     Active Substance: FLUOXETINE HYDROCHLORIDE
     Indication: PRODUCT USED FOR UNKNOWN INDICATION
     Dosage: 20 MG, QD
     Route: 048
  4. HUMULIN R [Concomitant]
     Active Substance: INSULIN HUMAN
     Indication: PRODUCT USED FOR UNKNOWN INDICATION
     Dosage: 20 IU, EACH MORNING
     Route: 065
  5. HUMULIN N [Concomitant]
     Active Substance: INSULIN HUMAN
     Indication: PRODUCT USED FOR UNKNOWN INDICATION
     Dosage: 32 IU, EACH EVENING
     Route: 065

REACTIONS (4)
  - Breech delivery [Unknown]
  - Premature rupture of membranes [Unknown]
  - Exposure during pregnancy [Unknown]
  - Premature labour [Unknown]
